FAERS Safety Report 18774525 (Version 1)
Quarter: 2021Q1

REPORT INFORMATION
  Report Type: Spontaneous
  Country: CA (occurrence: CA)
  Receive Date: 20210122
  Receipt Date: 20210122
  Transmission Date: 20210419
  Serious: Yes (Hospitalization)
  Sender: FDA-Public Use
  Company Number: CA-ACCORD-214735

PATIENT
  Sex: Female

DRUGS (1)
  1. PACLITAXEL/PACLITAXEL LIPOSOME [Suspect]
     Active Substance: PACLITAXEL
     Indication: CHEMOTHERAPY
     Dosage: INTRAVENOUS INJECTION

REACTIONS (7)
  - Tachycardia [Unknown]
  - Flushing [Unknown]
  - Headache [Unknown]
  - Hypotension [Unknown]
  - Loss of consciousness [Unknown]
  - Coma scale abnormal [Unknown]
  - Similar reaction on previous exposure to drug [Unknown]
